FAERS Safety Report 4961181-4 (Version None)
Quarter: 2006Q1

REPORT INFORMATION
  Report Type: 
  Country: None (occurrence: None)
  Receive Date: 20060201
  Receipt Date: 20051027
  Transmission Date: 20060701
  Serious: No
  Sender: FDA-Public Use
  Company Number: 2005PV003799

PATIENT
  Age: 39 Year
  Sex: Female
  Weight: 92.9874 kg

DRUGS (6)
  1. BYETTA [Suspect]
     Indication: DIABETES MELLITUS NON-INSULIN-DEPENDENT
     Dosage: 5 MCG;BID;SC
     Route: 058
     Dates: start: 20051021
  2. AVANDIA [Concomitant]
  3. AMARYL [Concomitant]
  4. VERAPAMIL [Concomitant]
  5. ATACAND [Concomitant]
  6. PROZAC [Concomitant]

REACTIONS (7)
  - ABDOMINAL DISTENSION [None]
  - BLOOD GLUCOSE DECREASED [None]
  - FLATULENCE [None]
  - INFREQUENT BOWEL MOVEMENTS [None]
  - NAUSEA [None]
  - TREMOR [None]
  - WEIGHT DECREASED [None]
